FAERS Safety Report 12595779 (Version 1)
Quarter: 2016Q3

REPORT INFORMATION
  Report Type: Spontaneous
  Country: DK (occurrence: DK)
  Receive Date: 20160726
  Receipt Date: 20160726
  Transmission Date: 20161109
  Serious: Yes (Hospitalization)
  Sender: FDA-Public Use
  Company Number: PHHY2016DK098628

PATIENT
  Age: 43 Year
  Sex: Female

DRUGS (1)
  1. FEMINIL MITE [Suspect]
     Active Substance: CYPROTERONE ACETATE\ETHINYL ESTRADIOL
     Indication: ORAL CONTRACEPTION
     Dosage: STRENGTH: 2.0+ 0.035 MG.
     Route: 048
     Dates: end: 20160629

REACTIONS (4)
  - Cor pulmonale [Unknown]
  - Pulmonary embolism [Recovering/Resolving]
  - Pulmonary hypertension [Unknown]
  - Tricuspid valve incompetence [Unknown]

NARRATIVE: CASE EVENT DATE: 20160629
